FAERS Safety Report 9580281 (Version 1)
Quarter: 2013Q3

REPORT INFORMATION
  Report Type: Spontaneous
  Country: US (occurrence: None)
  Receive Date: 20130916
  Receipt Date: 20130916
  Transmission Date: 20140515
  Serious: Yes (Other)
  Sender: FDA-Public Use
  Company Number: JPI-P-024425

PATIENT
  Age: 53 Year
  Sex: Female
  Weight: 51.71 kg

DRUGS (4)
  1. XYREM [Suspect]
     Indication: CATAPLEXY
     Dosage: 4.5 GM (2.25 GM, 2 IN 1 D), ORAL
     Route: 048
     Dates: start: 20120607, end: 2012
  2. ESTRADIOL [Suspect]
     Indication: PRODUCT USED FOR UNKNOWN INDICATION
     Dates: end: 201206
  3. DULOXETINE HYDROCHLORIDE [Concomitant]
  4. DEXTROAMPHETAMINE [Concomitant]

REACTIONS (9)
  - Weight decreased [None]
  - Loose tooth [None]
  - Bruxism [None]
  - Productive cough [None]
  - Decreased appetite [None]
  - Dysgeusia [None]
  - Night sweats [None]
  - Libido increased [None]
  - Sinusitis [None]
